FAERS Safety Report 8423864-3 (Version None)
Quarter: 2012Q2

REPORT INFORMATION
  Report Type: 
  Country: None (occurrence: None)
  Receive Date: 20120608
  Receipt Date: 20110415
  Transmission Date: 20120825
  Serious: No
  Sender: FDA-Public Use
  Company Number: US-ASTRAZENECA-2011SE22282

PATIENT
  Age: 40 Year
  Sex: Male
  Weight: 74.8 kg

DRUGS (1)
  1. ATACAND [Suspect]
     Indication: HYPERTENSION
     Route: 048
     Dates: start: 20110301

REACTIONS (7)
  - RHINORRHOEA [None]
  - IMMUNE SYSTEM DISORDER [None]
  - CHEST PAIN [None]
  - COUGH [None]
  - THROAT IRRITATION [None]
  - VARICELLA [None]
  - SNEEZING [None]
